FAERS Safety Report 4376414-5 (Version None)
Quarter: 2004Q2

REPORT INFORMATION
  Report Type: 
  Country: None (occurrence: None)
  Receive Date: 20040610
  Receipt Date: 20040610
  Transmission Date: 20050107
  Serious: Yes (Hospitalization)
  Sender: FDA-Public Use
  Company Number: None

PATIENT
  Sex: Male
  Weight: 95.709 kg

DRUGS (8)
  1. PEGASYS [Suspect]
     Indication: HEPATITIS C
     Dosage: 180 MG WEEKLY SC
     Route: 058
     Dates: start: 20031014, end: 20040609
  2. RIBAVIRIN [Suspect]
     Indication: HEPATITIS C
     Dosage: 600 MG BID ORAL
     Route: 048
     Dates: start: 20031014, end: 20040609
  3. FELODIPINE SA [Concomitant]
  4. NIACIN SA [Concomitant]
  5. TRAZODONE HCL [Concomitant]
  6. SERTRALINE HCL [Concomitant]
  7. QUETIAPINE [Concomitant]
  8. COLESTIPOL [Concomitant]

REACTIONS (1)
  - DEEP VEIN THROMBOSIS [None]
